FAERS Safety Report 7294505-6 (Version None)
Quarter: 2011Q1

REPORT INFORMATION
  Report Type: 
  Country: None (occurrence: None)
  Receive Date: 20110216
  Receipt Date: 20110203
  Transmission Date: 20110831
  Serious: No
  Sender: FDA-Public Use
  Company Number: US-BIOGENIDEC-2010BI016866

PATIENT
  Sex: Male

DRUGS (1)
  1. TYSABRI [Suspect]
     Indication: MULTIPLE SCLEROSIS
     Route: 042
     Dates: start: 20100311, end: 20100903

REACTIONS (7)
  - FATIGUE [None]
  - FALL [None]
  - TENDONITIS [None]
  - MUSCULAR WEAKNESS [None]
  - FAECAL INCONTINENCE [None]
  - GAIT DISTURBANCE [None]
  - PROGRESSIVE MULTIPLE SCLEROSIS [None]
